FAERS Safety Report 12904667 (Version 2)
Quarter: 2016Q4

REPORT INFORMATION
  Report Type: Spontaneous
  Country: US (occurrence: US)
  Receive Date: 20161102
  Receipt Date: 20161107
  Transmission Date: 20170207
  Serious: No
  Sender: FDA-Public Use
  Company Number: US-BAYER-2016-205296

PATIENT
  Sex: Female

DRUGS (1)
  1. CIPRO [Suspect]
     Active Substance: CIPROFLOXACIN HYDROCHLORIDE
     Indication: URINARY TRACT INFECTION

REACTIONS (9)
  - Dehydration [None]
  - Abdominal pain upper [None]
  - Dyspnoea [None]
  - Dizziness [None]
  - Headache [None]
  - Myalgia [None]
  - Muscle spasms [None]
  - Fatigue [None]
  - Constipation [None]
